FAERS Safety Report 4695191-1 (Version None)
Quarter: 2005Q2

REPORT INFORMATION
  Report Type: 
  Country: None (occurrence: None)
  Receive Date: 20050614
  Receipt Date: 20050117
  Transmission Date: 20051028
  Serious: No
  Sender: FDA-Public Use
  Company Number: USA050188648

PATIENT
  Age: 58 Year
  Sex: Male

DRUGS (5)
  1. CIALIS [Suspect]
     Dosage: 20 MG
  2. LIPITOR [Concomitant]
  3. SERZONE [Concomitant]
  4. CLOMIPRAMINE HCL [Concomitant]
  5. PREVACID [Concomitant]

REACTIONS (1)
  - PAIN IN EXTREMITY [None]
